FAERS Safety Report 6022559-3 (Version None)
Quarter: 2008Q4

REPORT INFORMATION
  Report Type: 
  Country: None (occurrence: None)
  Receive Date: 20081230
  Receipt Date: 20081219
  Transmission Date: 20090506
  Serious: Yes (Other)
  Sender: FDA-Public Use
  Company Number: PHHY2008GB17224

PATIENT
  Sex: Male

DRUGS (7)
  1. CLOZARIL [Suspect]
     Indication: SCHIZOPHRENIA
     Dosage: 450 MG OD
     Dates: start: 20031120
  2. CLOZARIL [Suspect]
     Dosage: 350 MG, QD
     Dates: start: 20080701
  3. CLOZARIL [Suspect]
     Dosage: 300 MG DAILY
  4. FLUOXETINE [Suspect]
     Indication: DEPRESSION
     Dosage: 40 MG DAILY
     Route: 048
     Dates: start: 20051001
  5. FLUOXETINE [Suspect]
     Dosage: 20 MG DAILY
     Route: 048
     Dates: start: 20081118
  6. AMISULPRIDE [Concomitant]
     Dosage: 400 MG DAILY
     Route: 048
     Dates: start: 20061201
  7. LACTULOSE [Concomitant]
     Indication: CONSTIPATION
     Dosage: 15 ML DAILY
     Route: 048

REACTIONS (4)
  - DIZZINESS [None]
  - DRUG LEVEL INCREASED [None]
  - ELECTROCARDIOGRAM QT PROLONGED [None]
  - VENTRICULAR EXTRASYSTOLES [None]
